FAERS Safety Report 12198724 (Version 1)
Quarter: 2016Q1

REPORT INFORMATION
  Report Type: Spontaneous
  Country: US (occurrence: None)
  Receive Date: 20160321
  Receipt Date: 20160321
  Transmission Date: 20160526
  Serious: Yes (Life-Threatening)
  Sender: FDA-Public Use
  Company Number: None

PATIENT
  Age: 52 Year
  Sex: Male
  Weight: 102.06 kg

DRUGS (10)
  1. PANTOPRAZOLE SOD [Concomitant]
     Active Substance: PANTOPRAZOLE SODIUM
  2. VITAMIN FORTIFIED CEREAL [Concomitant]
  3. ROPINIROLE .25 MG SOLCO [Suspect]
     Active Substance: ROPINIROLE HYDROCHLORIDE
     Indication: PARKINSON^S DISEASE
     Dosage: 1 ONCE DAILY, TAKEN BY MOUTH
     Dates: start: 20160219, end: 20160318
  4. ASPIRIN. [Concomitant]
     Active Substance: ASPIRIN
  5. ROPINIROLE. [Concomitant]
     Active Substance: ROPINIROLE
  6. DIPHENHYDRAMINE. [Concomitant]
     Active Substance: DIPHENHYDRAMINE
  7. RIZOTRIPTAN BENZOATE [Concomitant]
  8. SIMVASTATIN. [Concomitant]
     Active Substance: SIMVASTATIN
  9. AMITRIPTYLLINE HCL [Concomitant]
  10. DILTIAZEM [Concomitant]
     Active Substance: DILTIAZEM

REACTIONS (6)
  - Nasal congestion [None]
  - Influenza like illness [None]
  - Sneezing [None]
  - Lip pruritus [None]
  - Throat tightness [None]
  - Feeling hot [None]

NARRATIVE: CASE EVENT DATE: 20160318
